FAERS Safety Report 22706756 (Version 8)
Quarter: 2024Q2

REPORT INFORMATION
  Report Type: Report from Study
  Country: CA (occurrence: CA)
  Receive Date: 20230714
  Receipt Date: 20240624
  Transmission Date: 20240716
  Serious: Yes (Other)
  Sender: FDA-Public Use
  Company Number: CA-BAUSCH-BL-2023-003702

PATIENT
  Sex: Female
  Weight: 70.295 kg

DRUGS (15)
  1. CONTRAVE [Suspect]
     Active Substance: BUPROPION HYDROCHLORIDE\NALTREXONE HYDROCHLORIDE
     Indication: Weight control
     Dosage: 90/8 MG, 1 TABLET IN MORNING
     Route: 048
     Dates: start: 20230225, end: 2023
  2. CONTRAVE [Suspect]
     Active Substance: BUPROPION HYDROCHLORIDE\NALTREXONE HYDROCHLORIDE
     Dosage: 90/8 MG
     Route: 048
     Dates: start: 2023, end: 20230312
  3. CONTRAVE [Suspect]
     Active Substance: BUPROPION HYDROCHLORIDE\NALTREXONE HYDROCHLORIDE
     Dosage: 90/8 MG, 2TAB IN MORNING, 2TAB IN EVENING
     Route: 048
     Dates: start: 20230313, end: 20230324
  4. CONTRAVE [Suspect]
     Active Substance: BUPROPION HYDROCHLORIDE\NALTREXONE HYDROCHLORIDE
     Dosage: 90/8 MG, 1 TAB IN MORNING
     Route: 048
     Dates: start: 20230325, end: 20230330
  5. CONTRAVE [Suspect]
     Active Substance: BUPROPION HYDROCHLORIDE\NALTREXONE HYDROCHLORIDE
     Dosage: 90/8 MG, 1 TAB IN MORNING 1 TAB IN EVENING
     Route: 048
     Dates: start: 20230331, end: 20230402
  6. CONTRAVE [Suspect]
     Active Substance: BUPROPION HYDROCHLORIDE\NALTREXONE HYDROCHLORIDE
     Dosage: 90/8 MG, 2 TAB IN MORNING 1 TAB IN EVENING
     Route: 048
     Dates: start: 20230403, end: 20230404
  7. CONTRAVE [Suspect]
     Active Substance: BUPROPION HYDROCHLORIDE\NALTREXONE HYDROCHLORIDE
     Dosage: 90/8 MG, 2TAB IN MORNING, 2TAB IN EVENING
     Route: 048
     Dates: start: 20230405, end: 202304
  8. CONTRAVE [Suspect]
     Active Substance: BUPROPION HYDROCHLORIDE\NALTREXONE HYDROCHLORIDE
     Dosage: 90/8 MG, 1TAB IN MORNING, 1TAB EVENING
     Route: 048
     Dates: start: 20230501, end: 20230502
  9. CONTRAVE [Suspect]
     Active Substance: BUPROPION HYDROCHLORIDE\NALTREXONE HYDROCHLORIDE
     Dosage: 90/8 MG, 2 TAB IN MORNING, 1 TAB IN EVENING
     Route: 048
     Dates: start: 20230503, end: 20230504
  10. CONTRAVE [Suspect]
     Active Substance: BUPROPION HYDROCHLORIDE\NALTREXONE HYDROCHLORIDE
     Dosage: 90/8 MG, 2TAB IN MORNING, 2TAB IN EVENING
     Route: 048
     Dates: start: 20230505, end: 2023
  11. CONTRAVE [Suspect]
     Active Substance: BUPROPION HYDROCHLORIDE\NALTREXONE HYDROCHLORIDE
     Dosage: 90/8 MG, 2 TAB/DAY
     Route: 048
     Dates: start: 20230606, end: 202306
  12. CONTRAVE [Suspect]
     Active Substance: BUPROPION HYDROCHLORIDE\NALTREXONE HYDROCHLORIDE
     Dosage: 90/8 MG
     Route: 048
     Dates: start: 202306, end: 202306
  13. CONTRAVE [Suspect]
     Active Substance: BUPROPION HYDROCHLORIDE\NALTREXONE HYDROCHLORIDE
     Dosage: 90/8 MG, 4 TAB/DAY (2 DOSAGE FORMS,1 IN 12 HR)
     Route: 048
     Dates: start: 20230610, end: 202311
  14. CONTRAVE [Suspect]
     Active Substance: BUPROPION HYDROCHLORIDE\NALTREXONE HYDROCHLORIDE
     Dosage: 90/8 MG, 1 TAB IN MORNING (SECOND ATTEMPT)
     Route: 048
     Dates: start: 20240426, end: 20240429
  15. CONTRAVE [Suspect]
     Active Substance: BUPROPION HYDROCHLORIDE\NALTREXONE HYDROCHLORIDE
     Dosage: 90/8 MG, 1 TAB IN MORNING, 1 TAB IN EVENING
     Route: 048
     Dates: start: 20240430

REACTIONS (17)
  - Neoplasm [Recovered/Resolved]
  - Brain fog [Recovering/Resolving]
  - Weight increased [Unknown]
  - Contusion [Unknown]
  - Migraine [Recovered/Resolved]
  - Myalgia [Recovered/Resolved]
  - Sluggishness [Recovered/Resolved]
  - Dehydration [Recovered/Resolved]
  - Middle insomnia [Not Recovered/Not Resolved]
  - Nausea [Recovered/Resolved]
  - Headache [Recovered/Resolved]
  - Drug titration error [Unknown]
  - Intentional product use issue [Unknown]
  - Product dose omission in error [Unknown]
  - Patient dissatisfaction with treatment [Unknown]
  - Intentional product misuse [Unknown]
  - Product prescribing issue [Unknown]

NARRATIVE: CASE EVENT DATE: 20230101
